FAERS Safety Report 16115627 (Version 1)
Quarter: 2019Q1

REPORT INFORMATION
  Report Type: Spontaneous
  Country: IT (occurrence: IT)
  Receive Date: 20190325
  Receipt Date: 20190325
  Transmission Date: 20190418
  Serious: Yes (Other)
  Sender: FDA-Public Use
  Company Number: IT-AUROBINDO-AUR-APL-2019-015949

PATIENT

DRUGS (4)
  1. PREDNISONE. [Suspect]
     Active Substance: PREDNISONE
     Indication: PERICARDITIS
     Dosage: 15 MILLIGRAM, UNK
     Route: 065
  2. PARACETAMOL [Suspect]
     Active Substance: ACETAMINOPHEN
     Indication: DISEASE RECURRENCE
     Dosage: UNK
     Route: 065
  3. PARACETAMOL [Suspect]
     Active Substance: ACETAMINOPHEN
     Indication: PERICARDITIS
  4. PREDNISONE. [Suspect]
     Active Substance: PREDNISONE
     Indication: DISEASE RECURRENCE

REACTIONS (2)
  - Exposure during pregnancy [Recovered/Resolved]
  - Amniotic cavity infection [Unknown]
